FAERS Safety Report 7237224-4 (Version None)
Quarter: 2011Q1

REPORT INFORMATION
  Report Type: 
  Country: None (occurrence: None)
  Receive Date: 20110110
  Receipt Date: 20101221
  Transmission Date: 20110831
  Serious: Yes (Other)
  Sender: FDA-Public Use
  Company Number: AUR-APL-2010-03223

PATIENT
  Age: 62 Year
  Sex: Female

DRUGS (2)
  1. PERINDOPRIL [Suspect]
  2. ATORVASTATIN CALCIUM [Suspect]

REACTIONS (9)
  - PERIPHERAL COLDNESS [None]
  - FEMORAL ARTERIAL STENOSIS [None]
  - CAROTID ARTERIOSCLEROSIS [None]
  - TACHYCARDIA [None]
  - INSOMNIA [None]
  - COUGH [None]
  - MYOCARDIAL INFARCTION [None]
  - DEPRESSION [None]
  - ANGIOEDEMA [None]
